FAERS Safety Report 8336397-X (Version None)
Quarter: 2012Q2

REPORT INFORMATION
  Report Type: 
  Country: None (occurrence: None)
  Receive Date: 20120504
  Receipt Date: 20120501
  Transmission Date: 20120825
  Serious: Yes (Death, Hospitalization)
  Sender: FDA-Public Use
  Company Number: PHEH2012US009259

PATIENT
  Sex: Male

DRUGS (3)
  1. RITALIN [Suspect]
  2. DICLOFENAC [Concomitant]
  3. MISOPROSTOL [Concomitant]

REACTIONS (1)
  - BRAIN NEOPLASM [None]
